FAERS Safety Report 8413280-2 (Version None)
Quarter: 2012Q2

REPORT INFORMATION
  Report Type: 
  Country: None (occurrence: None)
  Receive Date: 20120605
  Receipt Date: 20120530
  Transmission Date: 20120825
  Serious: Yes (Other)
  Sender: FDA-Public Use
  Company Number: PHHY2012BR047281

PATIENT
  Age: 41 Year
  Sex: Male
  Weight: 68 kg

DRUGS (3)
  1. VOLTAREN [Suspect]
     Dosage: 3 DF, QD
     Route: 048
     Dates: start: 20120301
  2. CETIRIZINE HYDROCHLORIDE [Concomitant]
     Indication: HYPERSENSITIVITY
     Dosage: 10 MG, QD
     Route: 048
     Dates: start: 20120525
  3. BUDESONIDE [Concomitant]
     Indication: HYPERSENSITIVITY
     Dosage: 64 UG, QD
     Route: 045
     Dates: start: 20120525

REACTIONS (7)
  - HEART RATE INCREASED [None]
  - PRURITUS [None]
  - LARYNGEAL OEDEMA [None]
  - BLOOD PRESSURE SYSTOLIC INCREASED [None]
  - DYSPHAGIA [None]
  - ERYTHEMA [None]
  - RESPIRATORY TRACT IRRITATION [None]
